FAERS Safety Report 4636364-3 (Version None)
Quarter: 2005Q2

REPORT INFORMATION
  Report Type: 
  Country: None (occurrence: None)
  Receive Date: 20050415
  Receipt Date: 20000711
  Transmission Date: 20051028
  Serious: Yes (Hospitalization)
  Sender: FDA-Public Use
  Company Number: US-ROCHE-240822

PATIENT
  Age: 35 Year
  Sex: Male
  Weight: 72.6 kg

DRUGS (5)
  1. ACCUTANE [Suspect]
     Indication: ACNE
     Route: 048
     Dates: start: 20000715, end: 20000915
  2. FLOVENT [Concomitant]
     Indication: ASTHMA
     Route: 055
     Dates: start: 19990215
  3. ALBUTEROL [Concomitant]
     Indication: ASTHMA
     Route: 055
     Dates: start: 19920115
  4. CLARITIN [Concomitant]
     Route: 048
     Dates: start: 19980115
  5. NASACORT [Concomitant]
     Indication: NASAL POLYPS
     Route: 045
     Dates: start: 19990115

REACTIONS (5)
  - CHAPPED LIPS [None]
  - DRY SKIN [None]
  - GALLBLADDER DISORDER [None]
  - LIP DRY [None]
  - SEBORRHOEA [None]
